FAERS Safety Report 16634213 (Version 1)
Quarter: 2019Q3

REPORT INFORMATION
  Report Type: Spontaneous
  Country: FR (occurrence: FR)
  Receive Date: 20190726
  Receipt Date: 20190726
  Transmission Date: 20191004
  Serious: Yes (Hospitalization)
  Sender: FDA-Public Use
  Company Number: FR-SUN PHARMACEUTICAL INDUSTRIES LTD-2019R1-214931

PATIENT
  Age: 32 Year
  Sex: Female
  Weight: 60 kg

DRUGS (1)
  1. IBUPROFENE [Suspect]
     Active Substance: IBUPROFEN
     Indication: LUNG DISORDER
     Dosage: INCONNUE ()
     Route: 048
     Dates: start: 20190527, end: 20190531

REACTIONS (2)
  - Pneumonia [Recovering/Resolving]
  - Infection [Not Recovered/Not Resolved]

NARRATIVE: CASE EVENT DATE: 20190531
